FAERS Safety Report 4919979-4 (Version None)
Quarter: 2006Q1

REPORT INFORMATION
  Report Type: 
  Country: None (occurrence: None)
  Receive Date: 20060217
  Receipt Date: 20060130
  Transmission Date: 20060701
  Serious: Yes (Hospitalization)
  Sender: FDA-Public Use
  Company Number: 20050041USST

PATIENT
  Age: 14 Year
  Sex: Female
  Weight: 91.8 kg

DRUGS (8)
  1. CARNITOR [Suspect]
     Indication: MITOCHONDRIAL ENCEPHALOMYOPATHY
     Dosage: 12 GRAMS, QD, IV    SEE IMAGE
     Route: 042
     Dates: start: 20051201
  2. MS CONTIN [Concomitant]
  3. TRAZODONE [Concomitant]
  4. MIRALAX [Concomitant]
  5. COENZYME Q10 [Concomitant]
  6. LEXAPRO [Concomitant]
  7. ZANAFLEX [Concomitant]
  8. NEXIUM [Concomitant]

REACTIONS (14)
  - ASTHENIA [None]
  - BENIGN INTRACRANIAL HYPERTENSION [None]
  - CONDITION AGGRAVATED [None]
  - DEPRESSION [None]
  - HEADACHE [None]
  - IIIRD NERVE PARALYSIS [None]
  - LETHARGY [None]
  - MUSCLE DISORDER [None]
  - PAIN [None]
  - POLYCYSTIC OVARIES [None]
  - SENSORY DISTURBANCE [None]
  - SKIN STRIAE [None]
  - VITH NERVE PARALYSIS [None]
  - WEIGHT INCREASED [None]
